FAERS Safety Report 5220482-5 (Version None)
Quarter: 2007Q1

REPORT INFORMATION
  Report Type: 
  Country: None (occurrence: None)
  Receive Date: 20070125
  Receipt Date: 20070125
  Transmission Date: 20070707
  Serious: Yes (Hospitalization)
  Sender: FDA-Public Use
  Company Number: None

PATIENT
  Sex: Female
  Weight: 108.8633 kg

DRUGS (5)
  1. ZAROXOLYN [Suspect]
     Indication: DIURETIC THERAPY
     Dosage: 2.5 MG PO QD
     Route: 048
  2. ZAROXOLYN [Suspect]
     Indication: HYPERTENSION
     Dosage: 2.5 MG PO QD
     Route: 048
  3. TOPROL-XL [Concomitant]
  4. COUMADIN [Concomitant]
  5. LASIX [Concomitant]

REACTIONS (2)
  - CHEST PAIN [None]
  - HYPOKALAEMIA [None]
